FAERS Safety Report 9549150 (Version 2)
Quarter: 2013Q4

REPORT INFORMATION
  Report Type: Report from Study
  Country: US (occurrence: US)
  Receive Date: 20130924
  Receipt Date: 20131021
  Transmission Date: 20140711
  Serious: Yes (Hospitalization, Other)
  Sender: FDA-Public Use
  Company Number: US-ACTELION-A-US2013-88558

PATIENT
  Age: 78 Year
  Sex: Female

DRUGS (3)
  1. TRACLEER [Suspect]
     Indication: PULMONARY HYPERTENSION
     Dosage: UNK
     Route: 048
  2. SILDENAFIL [Concomitant]
  3. LETAIRIS [Concomitant]

REACTIONS (4)
  - Pulmonary oedema [Unknown]
  - Diabetic neuropathy [Unknown]
  - Fall [Unknown]
  - Concussion [Unknown]
